FAERS Safety Report 7488617-1 (Version None)
Quarter: 2011Q2

REPORT INFORMATION
  Report Type: 
  Country: None (occurrence: None)
  Receive Date: 20110518
  Receipt Date: 20090604
  Transmission Date: 20111010
  Serious: Yes (Hospitalization)
  Sender: FDA-Public Use
  Company Number: A0791862A

PATIENT
  Age: 56 Year
  Sex: Female

DRUGS (1)
  1. AVANDIA [Suspect]
     Indication: DIABETES MELLITUS
     Dosage: 8MG PER DAY
     Route: 048
     Dates: start: 20020101, end: 20070101

REACTIONS (4)
  - CARDIOVASCULAR DISORDER [None]
  - RETINAL OEDEMA [None]
  - DIPLOPIA [None]
  - VISUAL ACUITY REDUCED [None]
